FAERS Safety Report 9571476 (Version 1)
Quarter: 2013Q3

REPORT INFORMATION
  Report Type: Spontaneous
  Country: FR (occurrence: None)
  Receive Date: 20130927
  Receipt Date: 20130927
  Transmission Date: 20140515
  Serious: Yes (Hospitalization)
  Sender: FDA-Public Use
  Company Number: 1916961

PATIENT
  Age: 52 Year
  Sex: Female

DRUGS (2)
  1. (CARBOPLATIN) [Suspect]
     Indication: OVARIAN CANCER
     Route: 041
     Dates: start: 20091123, end: 20091123
  2. ENDOXAN [Suspect]
     Indication: OVARIAN CANCER
     Route: 041
     Dates: start: 20091123, end: 20091123

REACTIONS (2)
  - Shock [None]
  - Loss of consciousness [None]
